FAERS Safety Report 6951980-1 (Version None)
Quarter: 2010Q3

REPORT INFORMATION
  Report Type: 
  Country: None (occurrence: None)
  Receive Date: 20100829
  Receipt Date: 20100419
  Transmission Date: 20110219
  Serious: No
  Sender: FDA-Public Use
  Company Number: US-ABBOTT-10P-163-0640328-00

PATIENT
  Sex: Male
  Weight: 81.72 kg

DRUGS (5)
  1. NIASPAN [Suspect]
     Indication: HIGH DENSITY LIPOPROTEIN DECREASED
     Route: 048
     Dates: start: 20090801, end: 20091216
  2. NIASPAN [Suspect]
     Route: 048
     Dates: start: 20091217, end: 20100301
  3. NIASPAN [Suspect]
     Route: 048
     Dates: start: 20100301, end: 20100401
  4. ASPIRIN [Concomitant]
     Indication: PROPHYLAXIS
     Route: 048
  5. EYE DROP [Concomitant]
     Indication: GLAUCOMA

REACTIONS (4)
  - DYSPEPSIA [None]
  - DYSPNOEA [None]
  - ERYTHEMA [None]
  - RASH [None]
